FAERS Safety Report 11038302 (Version 2)
Quarter: 2015Q2

REPORT INFORMATION
  Report Type: Spontaneous
  Country: US (occurrence: US)
  Receive Date: 20150416
  Receipt Date: 20150513
  Transmission Date: 20150821
  Serious: Yes (Other)
  Sender: FDA-Public Use
  Company Number: US-PFIZER INC-2015127589

PATIENT
  Age: 58 Year
  Sex: Female

DRUGS (3)
  1. LIPITOR [Suspect]
     Active Substance: ATORVASTATIN CALCIUM
     Indication: BLOOD CHOLESTEROL INCREASED
     Dosage: 40 MG, 1X/DAY
     Route: 048
     Dates: start: 201205
  2. LIPITOR [Suspect]
     Active Substance: ATORVASTATIN CALCIUM
     Indication: BLOOD TRIGLYCERIDES INCREASED
  3. MINIVELLE [Concomitant]
     Active Substance: ESTRADIOL
     Indication: OESTROGEN THERAPY
     Dosage: 0.1 MG, 2X/DAY (PATCH)
     Dates: start: 200001

REACTIONS (2)
  - Type 2 diabetes mellitus [Not Recovered/Not Resolved]
  - Emotional distress [Not Recovered/Not Resolved]

NARRATIVE: CASE EVENT DATE: 20130408
